FAERS Safety Report 20939968 (Version 1)
Quarter: 2022Q2

REPORT INFORMATION
  Report Type: Spontaneous
  Country: US (occurrence: None)
  Receive Date: 20220609
  Receipt Date: 20220609
  Transmission Date: 20220720
  Serious: No
  Sender: FDA-Public Use
  Company Number: None

PATIENT
  Age: 57 Year
  Sex: Male
  Weight: 78.02 kg

DRUGS (1)
  1. COSENTYX [Suspect]
     Active Substance: SECUKINUMAB
     Indication: Psoriatic arthropathy
     Dosage: INJECTE 300MG (2 PENS) SUBCUTANEOUSLY ONCE A WEEK FOR 5 WEEKS AS DIRECTED?
     Route: 058
     Dates: start: 202201

REACTIONS (1)
  - Lung disorder [None]
